FAERS Safety Report 23248414 (Version 1)
Quarter: 2023Q4

REPORT INFORMATION
  Report Type: Spontaneous
  Country: IT (occurrence: IT)
  Receive Date: 20231201
  Receipt Date: 20231201
  Transmission Date: 20240110
  Serious: Yes (Other)
  Sender: FDA-Public Use
  Company Number: IT-MINISAL02-435883

PATIENT
  Age: 90 Year
  Sex: Male

DRUGS (4)
  1. DOXAZOSIN [Suspect]
     Active Substance: DOXAZOSIN MESYLATE
     Indication: Hypertension
     Dosage: 4 MILLIGRAM
     Route: 048
     Dates: start: 20170211, end: 20170211
  2. Folina [Concomitant]
     Indication: Product used for unknown indication
     Dosage: UNK
     Route: 065
  3. Ferro grad folic [Concomitant]
     Indication: Product used for unknown indication
     Dosage: UNK
     Route: 065
  4. Dobetin [Concomitant]
     Indication: Product used for unknown indication
     Dosage: UNK
     Route: 065

REACTIONS (3)
  - Loss of consciousness [Recovering/Resolving]
  - Balance disorder [Recovering/Resolving]
  - Fall [Recovering/Resolving]

NARRATIVE: CASE EVENT DATE: 20170212
